FAERS Safety Report 7946273-X (Version None)
Quarter: 2011Q4

REPORT INFORMATION
  Report Type: 
  Country: None (occurrence: None)
  Receive Date: 20111129
  Receipt Date: 20111122
  Transmission Date: 20120403
  Serious: Yes (Life-Threatening, Other)
  Sender: FDA-Public Use
  Company Number: JP-ROCHE-1016363

PATIENT
  Sex: Male
  Weight: 44 kg

DRUGS (7)
  1. CISPLATIN [Suspect]
     Indication: METASTATIC GASTRIC CANCER
     Route: 041
     Dates: start: 20111003, end: 20111003
  2. XELODA [Suspect]
     Dosage: DOSAGE IS UNCERTAIN.
     Route: 048
     Dates: start: 20111001, end: 20111024
  3. HERCEPTIN [Suspect]
     Indication: METASTATIC GASTRIC CANCER
     Route: 041
     Dates: start: 20111003, end: 20111003
  4. XELODA [Suspect]
     Indication: METASTATIC GASTRIC CANCER
     Route: 048
     Dates: start: 20111003, end: 20111001
  5. GASTROM [Concomitant]
     Indication: GASTRIC ULCER
     Route: 048
     Dates: start: 20110920
  6. HEPARIN [Concomitant]
     Indication: PROPHYLAXIS
     Dosage: DOSAGE IS UNCERTAIN.
     Route: 003
     Dates: start: 20110928
  7. LANSOPRAZOLE [Concomitant]
     Indication: GASTRIC ULCER
     Route: 048
     Dates: start: 20110920

REACTIONS (3)
  - GASTRIC PERFORATION [None]
  - CONSTIPATION [None]
  - NEUTROPHIL COUNT DECREASED [None]
